FAERS Safety Report 6270886-7 (Version None)
Quarter: 2009Q3

REPORT INFORMATION
  Report Type: 
  Country: None (occurrence: None)
  Receive Date: 20090716
  Receipt Date: 20090706
  Transmission Date: 20100115
  Serious: Yes (Other)
  Sender: FDA-Public Use
  Company Number: BE-ABBOTT-09P-013-0580550-00

PATIENT
  Sex: Female

DRUGS (5)
  1. HUMIRA [Suspect]
     Indication: CROHN'S DISEASE
     Route: 058
     Dates: start: 20080410
  2. BECLOMETHASONE DIPROPIONATE [Concomitant]
     Indication: CROHN'S DISEASE
     Dates: start: 20080101
  3. SALAZOPYRINE [Concomitant]
     Indication: CROHN'S DISEASE
     Dates: start: 19971201
  4. EMCONCOR [Concomitant]
     Indication: HYPERTENSION
  5. VITAMIN B-12 [Concomitant]
     Indication: VITAMIN SUPPLEMENTATION

REACTIONS (2)
  - CEREBRAL ARTERIOSCLEROSIS [None]
  - CEREBRAL INFARCTION [None]
